FAERS Safety Report 16779970 (Version 6)
Quarter: 2022Q3

REPORT INFORMATION
  Report Type: Spontaneous
  Country: RO (occurrence: RO)
  Receive Date: 20190906
  Receipt Date: 20220829
  Transmission Date: 20221027
  Serious: Yes (Death, Life-Threatening, Hospitalization, Other)
  Sender: FDA-Public Use
  Company Number: PHHY2019RO206658

PATIENT
  Age: 66 Year
  Sex: Female
  Weight: 78 kg

DRUGS (12)
  1. METHOTREXATE [Suspect]
     Active Substance: METHOTREXATE
     Indication: B precursor type acute leukaemia
     Dosage: VIALS OF 5 G, 15 MG CYCLIC
     Route: 037
     Dates: start: 20170130, end: 20170130
  2. METHOTREXATE [Suspect]
     Active Substance: METHOTREXATE
     Dosage: VIALS OF 5 G, 345 MG, I.V. DURING 2 HOURS
     Route: 042
     Dates: start: 20170203, end: 20170203
  3. METHOTREXATE [Suspect]
     Active Substance: METHOTREXATE
     Dosage: VIALS OF 5 G 1375 MG, CYCLIC I.V. IN A 22 HOURS PERFUSION,
     Route: 042
     Dates: start: 20170203, end: 20170203
  4. CYTARABINE [Suspect]
     Active Substance: CYTARABINE
     Indication: B precursor type acute leukaemia
     Dosage: 25 MG, CYCLIC
     Route: 037
     Dates: start: 20170130
  5. CYTARABINE [Suspect]
     Active Substance: CYTARABINE
     Dosage: 2 DF, QD (IN IV PERFUSION OF 2 HRS, AT 12 HRS INTERVALS)) OF 2G STRENGTH
     Route: 042
     Dates: start: 20170204, end: 20170205
  6. METHYLPREDNISOLONE [Suspect]
     Active Substance: METHYLPREDNISOLONE
     Indication: B precursor type acute leukaemia
     Dosage: 50 MG AT 12 HOURS INTERVAL
     Route: 042
     Dates: start: 20170203, end: 20170205
  7. CYCLOPHOSPHAMIDE [Suspect]
     Active Substance: CYCLOPHOSPHAMIDE
     Indication: B precursor type acute leukaemia
     Dosage: VIALS OF 200 MG, 340 MG/DOSE
     Route: 042
     Dates: start: 20170113, end: 20170115
  8. VINCRISTINE [Suspect]
     Active Substance: VINCRISTINE
     Indication: B precursor type acute leukaemia
     Dosage: 2 MG, QD
     Route: 042
     Dates: start: 20170115
  9. VINCRISTINE [Suspect]
     Active Substance: VINCRISTINE
     Dosage: 2 DF, QD
     Route: 042
     Dates: start: 20170123
  10. DOXORUBICIN [Suspect]
     Active Substance: DOXORUBICIN
     Indication: B precursor type acute leukaemia
     Dosage: 80 MG, CYCLIC
     Route: 042
     Dates: start: 20170116
  11. DEXAMETHASONE [Concomitant]
     Active Substance: DEXAMETHASONE
     Indication: B precursor type acute leukaemia
     Dosage: 1 DRP, QH
     Route: 057
     Dates: start: 20170204, end: 20170207
  12. FRAGMIN [Concomitant]
     Active Substance: DALTEPARIN SODIUM
     Indication: Prophylaxis
     Dosage: 5000 U/L, QD
     Route: 058

REACTIONS (5)
  - Hepatic failure [Fatal]
  - Hepatic infarction [Fatal]
  - Cardiopulmonary failure [Fatal]
  - Clostridium difficile colitis [Recovered/Resolved]
  - Bone marrow failure [Recovering/Resolving]

NARRATIVE: CASE EVENT DATE: 20170206
